FAERS Safety Report 11129287 (Version 1)
Quarter: 2015Q2

REPORT INFORMATION
  Report Type: Spontaneous
  Country: US (occurrence: US)
  Receive Date: 20150521
  Receipt Date: 20150521
  Transmission Date: 20150821
  Serious: No
  Sender: FDA-Public Use
  Company Number: US-PFIZER INC-2015172167

PATIENT
  Age: 61 Year
  Sex: Female

DRUGS (2)
  1. ATIVAN [Suspect]
     Active Substance: LORAZEPAM
     Dosage: UNK
  2. ZOLOFT [Suspect]
     Active Substance: SERTRALINE HYDROCHLORIDE
     Dosage: UNK

REACTIONS (3)
  - Drug hypersensitivity [Unknown]
  - Mental status changes [Unknown]
  - Drug intolerance [Unknown]
